FAERS Safety Report 5964255-4 (Version None)
Quarter: 2008Q4

REPORT INFORMATION
  Report Type: 
  Country: None (occurrence: None)
  Receive Date: 20081124
  Receipt Date: 20081113
  Transmission Date: 20090506
  Serious: Yes (Other)
  Sender: FDA-Public Use
  Company Number: MX-PFIZER INC-2008096585

PATIENT
  Age: 58 Year
  Sex: Female
  Weight: 58 kg

DRUGS (1)
  1. CELEBREX [Suspect]
     Indication: ARTHRITIS
     Route: 048
     Dates: start: 20081017, end: 20081017

REACTIONS (9)
  - ANXIETY [None]
  - ENANTHEMA [None]
  - FEELING ABNORMAL [None]
  - HYPERTENSION [None]
  - PHARYNGEAL OEDEMA [None]
  - PRURITUS [None]
  - RASH [None]
  - RASH GENERALISED [None]
  - TACHYCARDIA [None]
